FAERS Safety Report 25751557 (Version 3)
Quarter: 2025Q4

REPORT INFORMATION
  Report Type: Spontaneous
  Country: EU (occurrence: EU)
  Receive Date: 20250902
  Receipt Date: 20251014
  Transmission Date: 20260117
  Serious: Yes (Hospitalization, Other)
  Sender: DAIICHI
  Company Number: EU-DSJP-DS-2025-161617-DE

PATIENT
  Age: 42 Year
  Sex: Female
  Weight: 86 kg

DRUGS (8)
  1. EDOXABAN TOSYLATE [Suspect]
     Active Substance: EDOXABAN TOSYLATE
     Indication: Atrial fibrillation
     Dosage: UNK
     Route: 065
     Dates: start: 2014
  2. EDOXABAN TOSYLATE [Suspect]
     Active Substance: EDOXABAN TOSYLATE
     Indication: Transient ischaemic attack
     Dosage: 1 DOSAGE FORM, QD
     Route: 065
     Dates: start: 2015
  3. EDOXABAN TOSYLATE [Suspect]
     Active Substance: EDOXABAN TOSYLATE
     Dosage: UNK
     Route: 065
     Dates: start: 2018, end: 2025
  4. HYDROCORTISONE [Concomitant]
     Active Substance: HYDROCORTISONE
     Indication: Prophylaxis
     Dosage: 30 MG
     Route: 065
     Dates: start: 2022
  5. ESOMEPRAZOLE [Concomitant]
     Active Substance: ESOMEPRAZOLE
     Indication: Crohn^s disease
     Dosage: 20 MG
     Route: 065
     Dates: start: 2008
  6. BISOPROLOL [Concomitant]
     Active Substance: BISOPROLOL
     Indication: Atrial fibrillation
     Dosage: 1.25 MG
     Route: 065
     Dates: start: 2012
  7. BISOPROLOL [Concomitant]
     Active Substance: BISOPROLOL
     Indication: Rheumatoid arthritis
  8. CHOLECALCIFEROL [Concomitant]
     Active Substance: CHOLECALCIFEROL
     Indication: Osteoporosis
     Dosage: 1000 MG
     Route: 065
     Dates: start: 2006

REACTIONS (8)
  - Cerebrovascular accident [Recovered/Resolved]
  - Haematochezia [Recovering/Resolving]
  - Intestinal haemorrhage [Unknown]
  - Gastrointestinal disorder [Recovering/Resolving]
  - Abdominal distension [Not Recovered/Not Resolved]
  - Dyspepsia [Unknown]
  - Abdominal pain upper [Unknown]
  - Contusion [Unknown]

NARRATIVE: CASE EVENT DATE: 20180601
